FAERS Safety Report 19915926 (Version 1)
Quarter: 2021Q4

REPORT INFORMATION
  Report Type: Spontaneous
  Country: US (occurrence: US)
  Receive Date: 20211004
  Receipt Date: 20211004
  Transmission Date: 20220303
  Serious: No
  Sender: FDA-Public Use
  Company Number: US-OTSUKA-2020_027324

PATIENT
  Sex: Female

DRUGS (1)
  1. ARIPIPRAZOLE [Suspect]
     Active Substance: ARIPIPRAZOLE
     Indication: Product used for unknown indication
     Dosage: UNK
     Route: 065
     Dates: start: 2016

REACTIONS (10)
  - Condition aggravated [Unknown]
  - Dermatochalasis [Unknown]
  - Skin disorder [Unknown]
  - Dry throat [Unknown]
  - Eyelid ptosis [Unknown]
  - Weight increased [Unknown]
  - Weight decreased [Unknown]
  - Alopecia [Unknown]
  - Product substitution issue [Unknown]
  - Drug ineffective [Unknown]
